FAERS Safety Report 4543874-6 (Version None)
Quarter: 2005Q1

REPORT INFORMATION
  Report Type: 
  Country: None (occurrence: None)
  Receive Date: 20050104
  Receipt Date: 20041229
  Transmission Date: 20050727
  Serious: Yes (Hospitalization)
  Sender: FDA-Public Use
  Company Number: 200414923FR

PATIENT
  Age: 88 Year
  Sex: Female

DRUGS (6)
  1. LASILIX [Suspect]
     Route: 048
  2. ALDACTONE [Suspect]
  3. DIGOXIN [Suspect]
     Route: 048
  4. CORVASAL [Concomitant]
  5. DIFFU K [Concomitant]
     Route: 048
  6. AMLODIPINE [Concomitant]

REACTIONS (4)
  - CARDIOACTIVE DRUG LEVEL INCREASED [None]
  - DRUG INTERACTION [None]
  - MALAISE [None]
  - MEDICATION ERROR [None]
